FAERS Safety Report 11867124 (Version 1)
Quarter: 2015Q4

REPORT INFORMATION
  Report Type: Spontaneous
  Country: US (occurrence: US)
  Receive Date: 20151224
  Receipt Date: 20151224
  Transmission Date: 20160305
  Serious: Yes (Other)
  Sender: FDA-Public Use
  Company Number: US-JNJFOC-20151216259

PATIENT
  Sex: Female
  Weight: 84.37 kg

DRUGS (10)
  1. REMICADE [Suspect]
     Active Substance: INFLIXIMAB
     Indication: CROHN^S DISEASE
     Route: 042
  2. PHENERGAN [Concomitant]
     Active Substance: PROMETHAZINE HYDROCHLORIDE
     Indication: NAUSEA
     Dosage: UPTO 4 TIMES A DAY
     Route: 065
  3. ACYCLOVIR. [Concomitant]
     Active Substance: ACYCLOVIR
     Indication: ORAL HERPES
     Route: 065
  4. LASIX [Concomitant]
     Active Substance: FUROSEMIDE
     Indication: JOINT SWELLING
     Route: 065
  5. METOPROLOL [Concomitant]
     Active Substance: METOPROLOL
     Indication: HYPERTENSION
     Route: 065
  6. PROZAC [Concomitant]
     Active Substance: FLUOXETINE HYDROCHLORIDE
     Indication: DEPRESSION
     Route: 065
  7. SOMA [Concomitant]
     Active Substance: CARISOPRODOL
     Indication: MYALGIA
     Dosage: 350 MG TWICE A DAY AS NEEDED
     Route: 065
  8. PLAVIX [Concomitant]
     Active Substance: CLOPIDOGREL BISULFATE
     Route: 065
  9. NITROGLYCERIN. [Concomitant]
     Active Substance: NITROGLYCERIN
     Indication: CHEST PAIN
     Route: 060
  10. XANAX [Concomitant]
     Active Substance: ALPRAZOLAM
     Indication: PANIC ATTACK
     Route: 065

REACTIONS (10)
  - Transient ischaemic attack [Unknown]
  - Drug ineffective [Not Recovered/Not Resolved]
  - Activities of daily living impaired [Unknown]
  - Cerebrovascular accident [Unknown]
  - Cardiac disorder [Unknown]
  - Upper respiratory tract infection [Recovered/Resolved]
  - Memory impairment [Unknown]
  - Myocardial infarction [Unknown]
  - Renal cyst [Not Recovered/Not Resolved]
  - Pain [Unknown]
